FAERS Safety Report 5127644-6 (Version None)
Quarter: 2006Q4

REPORT INFORMATION
  Report Type: 
  Country: None (occurrence: None)
  Receive Date: 20061016
  Receipt Date: 20061004
  Transmission Date: 20070319
  Serious: Yes (Other)
  Sender: FDA-Public Use
  Company Number: PHBS2006JP15517

PATIENT
  Age: 57 Year
  Sex: Male

DRUGS (2)
  1. CYCLOSPORINE [Suspect]
     Indication: MYELITIS
     Route: 065
  2. STEROIDS NOS [Concomitant]
     Indication: MYELITIS

REACTIONS (2)
  - PNEUMONITIS CRYPTOCOCCAL [None]
  - SARCOIDOSIS [None]
